FAERS Safety Report 9551897 (Version 1)
Quarter: 2013Q3

REPORT INFORMATION
  Report Type: Spontaneous
  Country: US (occurrence: US)
  Receive Date: 20130925
  Receipt Date: 20130925
  Transmission Date: 20140515
  Serious: No
  Sender: FDA-Public Use
  Company Number: US-BAYER-2013-115489

PATIENT
  Age: 8 Year
  Sex: Male

DRUGS (7)
  1. SORAFENIB (RAF KINASE INHIBITOR) [Suspect]
     Indication: THYROID CANCER METASTATIC
     Dosage: 200 MG, QD (200 MG/M2)
     Route: 048
     Dates: start: 2009, end: 2009
  2. SORAFENIB (RAF KINASE INHIBITOR) [Suspect]
     Indication: METASTASES TO LUNG
     Dosage: 200 MG, BID (400 MG/M2)
     Route: 048
     Dates: start: 2009, end: 2009
  3. SORAFENIB (RAF KINASE INHIBITOR) [Suspect]
     Indication: THYROID CANCER METASTATIC
     Dosage: 200 MG BID IN CYCLE OF 3 WEEKS AND 1 WEEK OFF
     Route: 048
     Dates: start: 201102
  4. LEVOTHYROXINE [Concomitant]
     Indication: HYPOTHYROIDISM
  5. CALCIUM [CALCIUM] [Concomitant]
     Indication: HYPOPARATHYROIDISM
  6. CALCITRIOL [Concomitant]
     Indication: HYPOPARATHYROIDISM
  7. SILDENAFIL [Concomitant]

REACTIONS (2)
  - Skin exfoliation [None]
  - Off label use [None]
